FAERS Safety Report 15348985 (Version 2)
Quarter: 2018Q3

REPORT INFORMATION
  Report Type: Spontaneous
  Country: JP (occurrence: JP)
  Receive Date: 20180904
  Receipt Date: 20180920
  Transmission Date: 20181010
  Serious: Yes (Other)
  Sender: FDA-Public Use
  Company Number: JP-INCYTE CORPORATION-2018IN008613

PATIENT

DRUGS (2)
  1. JAKAVI [Suspect]
     Active Substance: RUXOLITINIB
     Dosage: 30 MG (6 TABLETS OF 5 MG TABLET), UNK
     Route: 048
  2. JAKAVI [Suspect]
     Active Substance: RUXOLITINIB
     Indication: MYELOFIBROSIS
     Dosage: 40 MG (8 TABLETS OF 5 MG TABLET), UNK
     Route: 048

REACTIONS (3)
  - Oesophageal varices haemorrhage [Unknown]
  - Platelet count decreased [Unknown]
  - Pneumonia [Unknown]
